FAERS Safety Report 9870951 (Version 2)
Quarter: 2014Q1

REPORT INFORMATION
  Report Type: Spontaneous
  Country: US (occurrence: US)
  Receive Date: 20140205
  Receipt Date: 20140328
  Transmission Date: 20141002
  Serious: No
  Sender: FDA-Public Use
  Company Number: US-009507513-1402USA001208

PATIENT
  Sex: Female
  Weight: 73.47 kg

DRUGS (7)
  1. MIRALAX [Suspect]
     Indication: PRODUCT USED FOR UNKNOWN INDICATION
     Dosage: 17 G, QPM
     Route: 048
     Dates: end: 20140130
  2. LEVOTHYROXINE SODIUM [Concomitant]
     Indication: OSTEOPOROSIS
     Dosage: UNK, UNKNOWN
  3. DICLOFENAC [Concomitant]
     Indication: OSTEOPOROSIS
     Dosage: UNK, UNKNOWN
  4. VESICARE [Concomitant]
     Indication: FIBROMYALGIA
     Dosage: UNK, UNKNOWN
  5. OMEPRAZOLE [Concomitant]
     Indication: FIBROMYALGIA
     Dosage: UNK, UNKNOWN
  6. SIMVASTATIN [Concomitant]
     Indication: URINARY TRACT DISORDER
     Dosage: UNK, UNKNOWN
  7. TRAMADOL HYDROCHLORIDE [Concomitant]
     Indication: PRODUCT USED FOR UNKNOWN INDICATION
     Dosage: UNK, UNKNOWN

REACTIONS (2)
  - Incorrect drug administration duration [Unknown]
  - Drug ineffective [Unknown]
